FAERS Safety Report 4449917-2 (Version None)
Quarter: 2004Q3

REPORT INFORMATION
  Report Type: 
  Country: None (occurrence: None)
  Receive Date: 20040915
  Receipt Date: 20040818
  Transmission Date: 20050211
  Serious: Yes (Hospitalization)
  Sender: FDA-Public Use
  Company Number: US-GLAXOSMITHKLINE-A0522631A

PATIENT
  Age: 56 Year
  Sex: Female

DRUGS (7)
  1. LAMICTAL [Suspect]
     Indication: BIPOLAR DISORDER
     Route: 048
     Dates: start: 19970201, end: 20040810
  2. NARDIL [Concomitant]
  3. PREMARIN [Concomitant]
  4. SYNTHROID [Concomitant]
  5. DESYREL [Concomitant]
  6. DIURETIC [Concomitant]
  7. GEODON [Concomitant]

REACTIONS (9)
  - BLINDNESS [None]
  - ECZEMA [None]
  - EYE SWELLING [None]
  - HEPATIC ENZYME INCREASED [None]
  - RASH [None]
  - RASH PUSTULAR [None]
  - STEVENS-JOHNSON SYNDROME [None]
  - SWELLING FACE [None]
  - THERMAL BURN [None]
